FAERS Safety Report 17305802 (Version 2)
Quarter: 2024Q2

REPORT INFORMATION
  Report Type: Other
  Country: US (occurrence: None)
  Receive Date: 20200123
  Receipt Date: 20240610
  Transmission Date: 20240716
  Serious: Yes (Other)
  Sender: FDA-Public Use
  Company Number: US-ROCHE-1982072

PATIENT
  Age: 66 Year
  Sex: Male
  Weight: 99.88 kg

DRUGS (9)
  1. NUTROPIN AQ [Suspect]
     Active Substance: SOMATROPIN
     Indication: Growth hormone deficiency
     Route: 058
     Dates: start: 2005
  2. NUTROPIN AQ [Suspect]
     Active Substance: SOMATROPIN
     Indication: Pituitary tumour benign
  3. ANDROGEL [Concomitant]
     Active Substance: TESTOSTERONE
     Dosage: APPLY 1 PUMP DAILY
  4. ACTONEL [Concomitant]
     Active Substance: RISEDRONATE SODIUM
  5. CORTEF [Concomitant]
     Active Substance: HYDROCORTISONE
  6. CORTEF [Concomitant]
     Active Substance: HYDROCORTISONE
  7. LEVOXYL [Concomitant]
     Active Substance: LEVOTHYROXINE SODIUM
     Route: 048
  8. NORVASC [Concomitant]
     Active Substance: AMLODIPINE BESYLATE
     Route: 048
  9. LEVOTHYROXINE [Concomitant]
     Active Substance: LEVOTHYROXINE\LEVOTHYROXINE SODIUM

REACTIONS (24)
  - Osteitis deformans [Unknown]
  - Weight increased [Unknown]
  - Fatigue [Unknown]
  - Irritability [Unknown]
  - Depressed mood [Unknown]
  - Depression [Unknown]
  - Blood testosterone decreased [Unknown]
  - Blood alkaline phosphatase increased [Unknown]
  - Blood creatinine increased [Unknown]
  - Glomerular filtration rate decreased [Unknown]
  - Red blood cell count increased [Unknown]
  - Mean cell volume decreased [Unknown]
  - Headache [Unknown]
  - Weight decreased [Unknown]
  - Asthenia [Unknown]
  - Hyperhidrosis [Unknown]
  - Onychomycosis [Unknown]
  - Low density lipoprotein increased [Unknown]
  - High density lipoprotein decreased [Unknown]
  - Blood cholesterol increased [Unknown]
  - Osteoporosis [Unknown]
  - Hypertension [Unknown]
  - Nocturia [Unknown]
  - Hyperlipidaemia [Unknown]
